FAERS Safety Report 20161722 (Version 2)
Quarter: 2021Q4

REPORT INFORMATION
  Report Type: Spontaneous
  Country: US (occurrence: US)
  Receive Date: 20211208
  Receipt Date: 20211213
  Transmission Date: 20220303
  Serious: Yes (Other)
  Sender: FDA-Public Use
  Company Number: US-SANOFI-00882356

PATIENT
  Age: 18 Year
  Sex: Female

DRUGS (1)
  1. ALLEGRA ALLERGY [Suspect]
     Active Substance: FEXOFENADINE HYDROCHLORIDE
     Indication: Hypersensitivity
     Dosage: 180 MG, QD
     Dates: start: 20211128, end: 20211129

REACTIONS (6)
  - Respiratory tract oedema [Unknown]
  - Swelling face [Not Recovered/Not Resolved]
  - Lip swelling [Unknown]
  - Mouth swelling [Unknown]
  - Impaired work ability [Not Recovered/Not Resolved]
  - Dyspnoea [Unknown]

NARRATIVE: CASE EVENT DATE: 20211128
